FAERS Safety Report 15400078 (Version 1)
Quarter: 2018Q3

REPORT INFORMATION
  Report Type: Report from Study
  Country: None (occurrence: DE)
  Receive Date: 20180919
  Receipt Date: 20180919
  Transmission Date: 20181010
  Serious: Yes (Death)
  Sender: FDA-Public Use
  Company Number: DE-ABBVIE-18S-062-2489972-00

PATIENT
  Sex: Male

DRUGS (1)
  1. DUODOPA [Suspect]
     Active Substance: CARBIDOPA\LEVODOPA
     Indication: PARKINSON^S DISEASE
     Dosage: MD 6 ML; CRD 3.9 ML/ H; ED 3 ML
     Route: 050
     Dates: start: 20080130

REACTIONS (2)
  - Death [Fatal]
  - Abdominal distension [Unknown]
